FAERS Safety Report 8903647 (Version 2)
Quarter: 2012Q4

REPORT INFORMATION
  Report Type: 
  Country: US (occurrence: US)
  Receive Date: 20121113
  Receipt Date: 20121211
  Transmission Date: 20130627
  Serious: No
  Sender: FDA-Public Use
  Company Number: US-PFIZER INC-2012283080

PATIENT
  Age: 65 Year
  Sex: Female
  Weight: 74.83 kg

DRUGS (4)
  1. LYRICA [Suspect]
     Indication: FIBROMYALGIA
     Dosage: 150 mg, 2x/day
     Route: 048
     Dates: start: 2011, end: 2012
  2. LYRICA [Suspect]
     Dosage: 150 mg, 1x/day
     Route: 048
     Dates: start: 2012, end: 201210
  3. PROPRANOLOL [Concomitant]
     Indication: BLOOD PRESSURE HIGH
     Dosage: 20 mg, 2x/day
  4. SAVELLA [Concomitant]
     Dosage: 50 mg, 2x/day

REACTIONS (11)
  - Nausea [Not Recovered/Not Resolved]
  - Nervousness [Not Recovered/Not Resolved]
  - Insomnia [Not Recovered/Not Resolved]
  - Feeling jittery [Not Recovered/Not Resolved]
  - Anxiety [Not Recovered/Not Resolved]
  - Feeling abnormal [Not Recovered/Not Resolved]
  - Depression [Not Recovered/Not Resolved]
  - Mood altered [Not Recovered/Not Resolved]
  - Insomnia [Not Recovered/Not Resolved]
  - Somnolence [Not Recovered/Not Resolved]
  - Incorrect dose administered [Unknown]
